FAERS Safety Report 5375242-1 (Version None)
Quarter: 2007Q2

REPORT INFORMATION
  Report Type: 
  Country: None (occurrence: None)
  Receive Date: 20070629
  Receipt Date: 20061117
  Transmission Date: 20071010
  Serious: No
  Sender: FDA-Public Use
  Company Number: US-ASTRAZENECA-2006UW24887

PATIENT
  Age: 51 Year
  Sex: Female

DRUGS (2)
  1. TAMOXIFEN CITRATE [Suspect]
  2. EFFEXOR [Suspect]
     Indication: HOT FLUSH

REACTIONS (1)
  - DRUG WITHDRAWAL SYNDROME [None]
